FAERS Safety Report 9319764 (Version 1)
Quarter: 2013Q2

REPORT INFORMATION
  Report Type: Spontaneous
  Country: FI (occurrence: FI)
  Receive Date: 20130530
  Receipt Date: 20130530
  Transmission Date: 20140414
  Serious: Yes (Other)
  Sender: FDA-Public Use
  Company Number: FI-GLAXOSMITHKLINE-B0801518A

PATIENT
  Age: 43 Year
  Sex: Male

DRUGS (1)
  1. REQUIP DEPOT [Suspect]
     Indication: PARKINSON^S DISEASE
     Route: 048

REACTIONS (5)
  - Pathological gambling [Not Recovered/Not Resolved]
  - Economic problem [Not Recovered/Not Resolved]
  - Confusional state [Not Recovered/Not Resolved]
  - Family stress [Not Recovered/Not Resolved]
  - Feeling of despair [Not Recovered/Not Resolved]
